FAERS Safety Report 5164064-2 (Version None)
Quarter: 2006Q4

REPORT INFORMATION
  Report Type: 
  Country: None (occurrence: None)
  Receive Date: 20061124
  Receipt Date: 20061109
  Transmission Date: 20070319
  Serious: Yes (Death, Hospitalization)
  Sender: FDA-Public Use
  Company Number: 2006139538

PATIENT
  Age: 5 Year
  Sex: Male

DRUGS (4)
  1. SERTRALINE [Suspect]
  2. CLOZAPINE [Suspect]
  3. THIORIDAZINE HCL [Suspect]
  4. ACETAMINOPHEN W/HYDROCODONE BITARTRATE (HYDROCODONE BITARTRATE) [Suspect]

REACTIONS (6)
  - ANOXIC ENCEPHALOPATHY [None]
  - BLOOD GLUCOSE DECREASED [None]
  - CEREBRAL HYPOPERFUSION [None]
  - CONVULSION [None]
  - TACHYCARDIA [None]
  - VOMITING [None]
